FAERS Safety Report 8955425 (Version 1)
Quarter: 2012Q4

REPORT INFORMATION
  Report Type: 
  Country: US (occurrence: US)
  Receive Date: 20121210
  Receipt Date: 20121210
  Transmission Date: 20130627
  Serious: No
  Sender: FDA-Public Use
  Company Number: US-PFIZER INC-2012305225

PATIENT

DRUGS (1)
  1. CHANTIX [Suspect]
     Dosage: UNK
     Dates: start: 20121201

REACTIONS (4)
  - Hot flush [Unknown]
  - Headache [Unknown]
  - Hypoaesthesia [Unknown]
  - Palpitations [Unknown]
